FAERS Safety Report 4789788-8 (Version None)
Quarter: 2005Q4

REPORT INFORMATION
  Report Type: 
  Country: None (occurrence: None)
  Receive Date: 20051006
  Receipt Date: 20051003
  Transmission Date: 20060501
  Serious: Yes (Other)
  Sender: FDA-Public Use
  Company Number: US-GLAXOSMITHKLINE-A0576695A

PATIENT
  Age: 36 Year
  Sex: Male

DRUGS (5)
  1. IMITREX [Suspect]
     Indication: CLUSTER HEADACHE
     Dosage: 1INJ AS REQUIRED
     Route: 058
     Dates: start: 20040101
  2. IMITREX [Suspect]
     Dosage: 1TAB AS REQUIRED
     Route: 048
  3. IMITREX [Suspect]
     Dosage: 1SPR AS REQUIRED
     Route: 045
     Dates: start: 19990101, end: 20040101
  4. BC POWDER [Concomitant]
  5. VERAPAMIL [Concomitant]

REACTIONS (9)
  - BURNING SENSATION [None]
  - CHEST DISCOMFORT [None]
  - DEVICE MALFUNCTION [None]
  - DRUG ADMINISTRATION ERROR [None]
  - DRUG INEFFECTIVE [None]
  - DRUG PRESCRIBING ERROR [None]
  - HAEMORRHAGE [None]
  - PHARMACEUTICAL PRODUCT COMPLAINT [None]
  - URTICARIA [None]
